FAERS Safety Report 7040526-8 (Version None)
Quarter: 2010Q4

REPORT INFORMATION
  Report Type: 
  Country: None (occurrence: None)
  Receive Date: 20101008
  Receipt Date: 20101008
  Transmission Date: 20110411
  Serious: Yes (Life-Threatening, Other)
  Sender: FDA-Public Use
  Company Number: None

PATIENT
  Age: 81 Year
  Sex: Male
  Weight: 73.4827 kg

DRUGS (2)
  1. BAYCOL [Suspect]
     Dosage: ONE PER DAY
     Dates: start: 20010101, end: 20020101
  2. SIMVASTATIN [Concomitant]

REACTIONS (4)
  - ANHEDONIA [None]
  - GAIT DISTURBANCE [None]
  - MYALGIA [None]
  - PAIN IN EXTREMITY [None]
